FAERS Safety Report 4354238-2 (Version None)
Quarter: 2004Q2

REPORT INFORMATION
  Report Type: 
  Country: None (occurrence: None)
  Receive Date: 20040506
  Receipt Date: 20040423
  Transmission Date: 20050107
  Serious: Yes (Hospitalization)
  Sender: FDA-Public Use
  Company Number: FR-GLAXOSMITHKLINE-B0331208A

PATIENT
  Age: 90 Year
  Sex: Female
  Weight: 50 kg

DRUGS (8)
  1. DEROXAT [Suspect]
     Route: 048
     Dates: start: 20040324, end: 20040330
  2. KARDEGIC [Suspect]
     Dosage: 75MG PER DAY
     Route: 048
     Dates: end: 20040330
  3. LOPRIL [Concomitant]
     Dosage: 25MG TWICE PER DAY
     Route: 048
  4. VASTAREL [Concomitant]
     Dosage: 20MG TWICE PER DAY
     Route: 048
  5. AMLODIPINE [Concomitant]
     Dosage: 5MG PER DAY
     Route: 048
  6. CALCIDOSE [Concomitant]
     Dosage: 2UNIT PER DAY
     Route: 048
  7. DOLIPRANE [Concomitant]
     Dosage: 1000MG PER DAY
     Route: 048
  8. IMOVANE [Concomitant]
     Dosage: 1UNIT AT NIGHT
     Route: 048

REACTIONS (2)
  - DRUG INTERACTION [None]
  - SUBDURAL HAEMATOMA [None]
